FAERS Safety Report 8524567-7 (Version None)
Quarter: 2012Q3

REPORT INFORMATION
  Report Type: 
  Country: None (occurrence: None)
  Receive Date: 20120720
  Receipt Date: 20120716
  Transmission Date: 20120928
  Serious: Yes (Hospitalization, Other)
  Sender: FDA-Public Use
  Company Number: US-PFIZER INC-2012171436

PATIENT
  Sex: Female
  Weight: 58.957 kg

DRUGS (3)
  1. GLYBURIDE [Concomitant]
     Indication: DIABETES MELLITUS
     Dosage: UNK
  2. LANTUS [Concomitant]
     Indication: DIABETES MELLITUS
     Dosage: 25 UNITS, UNK
  3. DETROL LA [Suspect]
     Indication: URINARY INCONTINENCE
     Dosage: 4 MG, 1X/DAY
     Route: 048

REACTIONS (10)
  - LOSS OF CONSCIOUSNESS [None]
  - VOMITING [None]
  - WEIGHT INCREASED [None]
  - MALAISE [None]
  - LIMB DISCOMFORT [None]
  - BODY HEIGHT DECREASED [None]
  - INFECTION [None]
  - GAIT DISTURBANCE [None]
  - WEIGHT DECREASED [None]
  - BLOOD GLUCOSE DECREASED [None]
